FAERS Safety Report 20029983 (Version 1)
Quarter: 2021Q4

REPORT INFORMATION
  Report Type: Spontaneous
  Country: US (occurrence: US)
  Receive Date: 20211103
  Receipt Date: 20211103
  Transmission Date: 20220303
  Serious: No
  Sender: FDA-Public Use
  Company Number: US-PFIZER INC-2020518061

PATIENT
  Age: 84 Year
  Sex: Female

DRUGS (2)
  1. CADUET [Suspect]
     Active Substance: AMLODIPINE BESYLATE\ATORVASTATIN CALCIUM
     Indication: Essential hypertension
     Dosage: UNK
     Route: 048
     Dates: start: 20201223
  2. CADUET [Suspect]
     Active Substance: AMLODIPINE BESYLATE\ATORVASTATIN CALCIUM
     Indication: Type V hyperlipidaemia
     Dosage: 1 DF, DAILY (TAKE 1 TABLET BY MOUTH ONCE DAILY)
     Route: 048
     Dates: start: 20210805

REACTIONS (3)
  - Prescription drug used without a prescription [Unknown]
  - Confusional state [Unknown]
  - Bradyphrenia [Unknown]
